FAERS Safety Report 14147142 (Version 4)
Quarter: 2018Q1

REPORT INFORMATION
  Report Type: Spontaneous
  Country: DE (occurrence: DE)
  Receive Date: 20171031
  Receipt Date: 20180212
  Transmission Date: 20180508
  Serious: Yes (Death, Hospitalization)
  Sender: FDA-Public Use
  Company Number: DE-INCYTE CORPORATION-2017IN009342

PATIENT

DRUGS (5)
  1. COTRIM [Concomitant]
     Active Substance: SULFAMETHOXAZOLE\TRIMETHOPRIM
     Indication: CHRONIC GRAFT VERSUS HOST DISEASE
     Dosage: 960 MG, QD
     Route: 048
     Dates: start: 2014
  2. VORICONAZOL [Concomitant]
     Active Substance: VORICONAZOLE
     Indication: CHRONIC GRAFT VERSUS HOST DISEASE
     Dosage: 100 MG, QD
     Route: 048
     Dates: start: 2015
  3. VORICONAZOL [Concomitant]
     Active Substance: VORICONAZOLE
     Indication: ASPERGILLUS INFECTION
  4. JAKAVI [Suspect]
     Active Substance: RUXOLITINIB
     Indication: CHRONIC GRAFT VERSUS HOST DISEASE
     Dosage: 20 MG, QD
     Route: 048
     Dates: start: 20160719, end: 20160812
  5. TACROLIMUS. [Concomitant]
     Active Substance: TACROLIMUS
     Indication: CHRONIC GRAFT VERSUS HOST DISEASE
     Dosage: 0.8 MG, QD
     Route: 048
     Dates: start: 2014

REACTIONS (12)
  - Sepsis [Fatal]
  - Fatigue [Unknown]
  - Hepatic failure [Fatal]
  - Product use in unapproved indication [Fatal]
  - Ascites [Unknown]
  - Jaundice [Unknown]
  - Respiratory failure [Fatal]
  - Decreased appetite [Unknown]
  - Bronchopulmonary aspergillosis [Fatal]
  - Mental status changes [Unknown]
  - Chromaturia [Unknown]
  - Nausea [Unknown]

NARRATIVE: CASE EVENT DATE: 20160719
